FAERS Safety Report 12204598 (Version 1)
Quarter: 2016Q1

REPORT INFORMATION
  Report Type: Other
  Country: GB (occurrence: GB)
  Receive Date: 20160323
  Receipt Date: 20160323
  Transmission Date: 20160526
  Serious: Yes (Other)
  Sender: FDA-Public Use
  Company Number: GB-TAKEDA-2016TJP005850

PATIENT
  Sex: Male

DRUGS (2)
  1. DIAZEPAM. [Concomitant]
     Active Substance: DIAZEPAM
  2. LANSOPRAZOLE. [Suspect]
     Active Substance: LANSOPRAZOLE
     Indication: PERFORATED ULCER
     Dosage: 30 MG, QD
     Route: 065

REACTIONS (2)
  - Hallucination [Unknown]
  - Agoraphobia [Unknown]
